FAERS Safety Report 10989100 (Version 2)
Quarter: 2015Q2

REPORT INFORMATION
  Report Type: Spontaneous
  Country: US (occurrence: US)
  Receive Date: 20150406
  Receipt Date: 20150420
  Transmission Date: 20150821
  Serious: Yes (Hospitalization, Other)
  Sender: FDA-Public Use
  Company Number: US-AMGEN-USASP2015031913

PATIENT
  Age: 72 Year
  Sex: Female

DRUGS (1)
  1. ENBREL [Suspect]
     Active Substance: ETANERCEPT
     Indication: RHEUMATOID ARTHRITIS
     Dosage: 50 MG, QWK
     Route: 065
     Dates: start: 199904

REACTIONS (11)
  - Transient ischaemic attack [Recovered/Resolved]
  - Post procedural complication [Recovered/Resolved]
  - Hypotension [Recovered/Resolved]
  - Gastrointestinal disorder [Recovered/Resolved]
  - Memory impairment [Not Recovered/Not Resolved]
  - Blood glucose decreased [Recovered/Resolved]
  - Glucose tolerance impaired [Unknown]
  - Overdose [Recovered/Resolved]
  - Syncope [Recovered/Resolved]
  - Bunion operation [Recovered/Resolved]
  - Extra dose administered [Recovered/Resolved]

NARRATIVE: CASE EVENT DATE: 2014
